FAERS Safety Report 11364581 (Version 1)
Quarter: 2015Q3

REPORT INFORMATION
  Report Type: Spontaneous
  Country: DE (occurrence: DE)
  Receive Date: 20150811
  Receipt Date: 20150811
  Transmission Date: 20151125
  Serious: Yes (Other)
  Sender: FDA-Public Use
  Company Number: DE-GLAXOSMITHKLINE-DE2015GSK113066

PATIENT
  Age: 1 Day
  Sex: Male
  Weight: 3.94 kg

DRUGS (1)
  1. LAMOTRIGINE. [Suspect]
     Active Substance: LAMOTRIGINE
     Indication: EPILEPSY
     Route: 064

REACTIONS (7)
  - Feeding disorder [Recovered/Resolved]
  - Bronchitis [Recovered/Resolved]
  - Language disorder [Not Recovered/Not Resolved]
  - Foetal exposure during pregnancy [Unknown]
  - Autism [Not Recovered/Not Resolved]
  - Mental impairment [Not Recovered/Not Resolved]
  - Crying [Recovered/Resolved]

NARRATIVE: CASE EVENT DATE: 20090929
